FAERS Safety Report 4849851-X (Version None)
Quarter: 2005Q4

REPORT INFORMATION
  Report Type: 
  Country: None (occurrence: None)
  Receive Date: 20051114
  Receipt Date: 20041029
  Transmission Date: 20060501
  Serious: Yes (Life-Threatening)
  Sender: FDA-Public Use
  Company Number: 2004242268US

PATIENT
  Age: 4 Year
  Sex: Male

DRUGS (1)
  1. CLEOCIN [Suspect]
     Indication: PHARYNGITIS STREPTOCOCCAL
     Dosage: 225 MG,TID,ORAL
     Route: 048
     Dates: start: 20041019

REACTIONS (1)
  - STEVENS-JOHNSON SYNDROME [None]
